FAERS Safety Report 5244063-2 (Version None)
Quarter: 2007Q1

REPORT INFORMATION
  Report Type: 
  Country: None (occurrence: None)
  Receive Date: 20070222
  Receipt Date: 20070209
  Transmission Date: 20070707
  Serious: Yes (Other)
  Sender: FDA-Public Use
  Company Number: PHBS2007BR02555

PATIENT
  Age: 25 Year
  Sex: Female
  Weight: 76 kg

DRUGS (1)
  1. METHERGINE [Suspect]
     Indication: POSTPARTUM HAEMORRHAGE
     Dosage: 0.125 MG, QD
     Route: 048
     Dates: start: 20070208

REACTIONS (2)
  - CONDITION AGGRAVATED [None]
  - POSTPARTUM HAEMORRHAGE [None]
